FAERS Safety Report 6534616-3 (Version None)
Quarter: 2010Q1

REPORT INFORMATION
  Report Type: 
  Country: None (occurrence: None)
  Receive Date: 20100112
  Receipt Date: 20100107
  Transmission Date: 20100710
  Serious: Yes (Other)
  Sender: FDA-Public Use
  Company Number: B0614860A

PATIENT
  Sex: Male

DRUGS (9)
  1. PAXIL [Suspect]
     Indication: DEPRESSION
     Dosage: 20MG PER DAY
     Route: 048
     Dates: start: 20091110, end: 20091217
  2. FLUNITRAZEPAM [Concomitant]
     Dosage: 1MG PER DAY
     Route: 048
     Dates: start: 20091003
  3. ZESTROMIN [Concomitant]
     Dosage: .25MG PER DAY
     Route: 048
     Dates: start: 20091003
  4. LENDORMIN [Concomitant]
     Route: 048
     Dates: start: 20091003
  5. AMARYL [Concomitant]
     Route: 048
  6. MUCOSTA [Concomitant]
     Dosage: 300MG PER DAY
     Route: 048
  7. ATARAX [Concomitant]
     Dosage: 25MG PER DAY
     Route: 048
     Dates: start: 20091003
  8. DALMANE [Concomitant]
     Dosage: 15MG PER DAY
     Route: 048
     Dates: start: 20091003
  9. URSO 250 [Concomitant]
     Dosage: 300MG PER DAY
     Route: 048

REACTIONS (5)
  - ACTIVATION SYNDROME [None]
  - AGGRESSION [None]
  - HOSTILITY [None]
  - IRRITABILITY [None]
  - PHYSICAL ASSAULT [None]
